FAERS Safety Report 5201848-6 (Version None)
Quarter: 2006Q4

REPORT INFORMATION
  Report Type: 
  Country: None (occurrence: None)
  Receive Date: 20061003
  Receipt Date: 20060720
  Transmission Date: 20070319
  Serious: No
  Sender: FDA-Public Use
  Company Number: 2006-0009914

PATIENT
  Age: 42 Year
  Sex: Male

DRUGS (1)
  1. TRUVADA [Suspect]

REACTIONS (2)
  - ABDOMINAL TENDERNESS [None]
  - LIVER FUNCTION TEST ABNORMAL [None]
